FAERS Safety Report 5481356-8 (Version None)
Quarter: 2007Q4

REPORT INFORMATION
  Report Type: 
  Country: None (occurrence: None)
  Receive Date: 20071005
  Receipt Date: 20071005
  Transmission Date: 20080405
  Serious: Yes (Hospitalization, Other)
  Sender: FDA-Public Use
  Company Number: None

PATIENT
  Sex: Female
  Weight: 63.5036 kg

DRUGS (1)
  1. LEVAQUIN [Suspect]
     Indication: PROPHYLAXIS
     Dosage: 1  DAILY  PO
     Route: 048
     Dates: start: 20070816, end: 20070830

REACTIONS (9)
  - ANXIETY [None]
  - BACK PAIN [None]
  - CARTILAGE INJURY [None]
  - DIZZINESS [None]
  - DYSPNOEA [None]
  - HEART RATE INCREASED [None]
  - INSOMNIA [None]
  - PAIN IN EXTREMITY [None]
  - TENDON DISORDER [None]
